FAERS Safety Report 15994698 (Version 6)
Quarter: 2022Q3

REPORT INFORMATION
  Report Type: Report from Study
  Country: FR (occurrence: FR)
  Receive Date: 20190222
  Receipt Date: 20220805
  Transmission Date: 20221026
  Serious: Yes (Other)
  Sender: FDA-Public Use
  Company Number: PHHO2019FR002017

PATIENT
  Age: 46 Year
  Sex: Female
  Weight: 48 kg

DRUGS (19)
  1. NILOTINIB [Suspect]
     Active Substance: NILOTINIB
     Indication: Philadelphia positive acute lymphocytic leukaemia
     Dosage: 800 MG, QD
     Route: 048
     Dates: start: 20181116, end: 20181126
  2. NILOTINIB [Suspect]
     Active Substance: NILOTINIB
     Dosage: 600 MG, QD
     Route: 048
     Dates: start: 20181129, end: 20181224
  3. NILOTINIB [Suspect]
     Active Substance: NILOTINIB
     Dosage: 600 MG, OS, (D1 TO D3 OF CYCLE 2)
     Route: 048
     Dates: start: 20181221, end: 20181223
  4. DEXAMETHASONE [Suspect]
     Active Substance: DEXAMETHASONE
     Indication: Product used for unknown indication
     Dosage: 40 UNK
     Route: 048
     Dates: start: 20181116, end: 20181117
  5. DEXAMETHASONE [Suspect]
     Active Substance: DEXAMETHASONE
     Dosage: 40 UNK
     Route: 048
     Dates: start: 20181123, end: 20181124
  6. CYTARABINE [Suspect]
     Active Substance: CYTARABINE
     Indication: Product used for unknown indication
     Dosage: 40 MG
     Route: 065
     Dates: start: 20181116, end: 20181116
  7. CYTARABINE [Suspect]
     Active Substance: CYTARABINE
     Dosage: 40 MG
     Route: 065
     Dates: start: 20181122, end: 20181122
  8. CYTARABINE [Suspect]
     Active Substance: CYTARABINE
     Dosage: 2400 MG, QD,(D2 TO D3 OF CYCLE 2)
     Route: 042
     Dates: start: 20181222, end: 20181223
  9. CYTARABINE [Suspect]
     Active Substance: CYTARABINE
     Dosage: 4800 MG, QD
     Route: 042
     Dates: start: 20181224
  10. CYTARABINE [Suspect]
     Active Substance: CYTARABINE
     Dosage: 40 MG, QD
     Route: 037
     Dates: start: 20181228, end: 20181228
  11. METHOTREXATE [Suspect]
     Active Substance: METHOTREXATE
     Indication: Product used for unknown indication
     Dosage: 15 MG, QD
     Route: 042
     Dates: start: 20181116, end: 20181116
  12. METHOTREXATE [Suspect]
     Active Substance: METHOTREXATE
     Dosage: 15 MG, UNK
     Route: 042
     Dates: start: 20181122, end: 20181122
  13. METHOTREXATE [Suspect]
     Active Substance: METHOTREXATE
     Dosage: 1590 MG, (D1 OF CYCLE 2)
     Route: 042
     Dates: start: 20181221, end: 20181221
  14. METHOTREXATE [Suspect]
     Active Substance: METHOTREXATE
     Dosage: 15 MG, QD
     Route: 042
     Dates: start: 20181228, end: 20181228
  15. VINCRISTINE [Suspect]
     Active Substance: VINCRISTINE
     Indication: Product used for unknown indication
     Dosage: 2 MG
     Route: 065
     Dates: start: 20181116
  16. VINCRISTINE [Suspect]
     Active Substance: VINCRISTINE
     Dosage: 2 MG
     Route: 065
     Dates: start: 20181123
  17. DASATINIB [Suspect]
     Active Substance: DASATINIB
     Indication: Product used for unknown indication
     Dosage: 100 MG, PER QD, (D 19 TO D24 OF CYCLE 2)
     Route: 048
     Dates: start: 20180108, end: 20190113
  18. DEPO-MEDROL [Concomitant]
     Active Substance: METHYLPREDNISOLONE ACETATE
     Indication: Product used for unknown indication
     Dosage: UNK
     Route: 065
     Dates: start: 20181228
  19. METHYLPREDNISOLONE [Concomitant]
     Active Substance: METHYLPREDNISOLONE
     Indication: Acute lymphocytic leukaemia
     Dosage: 40 MG, QD
     Route: 037
     Dates: start: 20181228, end: 20181228

REACTIONS (3)
  - Hepatitis E [Recovered/Resolved with Sequelae]
  - Hepatitis toxic [Recovered/Resolved]
  - Hepatitis toxic [Recovered/Resolved]

NARRATIVE: CASE EVENT DATE: 20181123
